FAERS Safety Report 7632116-0 (Version None)
Quarter: 2011Q3

REPORT INFORMATION
  Report Type: 
  Country: None (occurrence: None)
  Receive Date: 20110725
  Receipt Date: 20110725
  Transmission Date: 20111222
  Serious: Yes (Life-Threatening, Other)
  Sender: FDA-Public Use
  Company Number: None

PATIENT
  Age: 75 Year
  Sex: Female
  Weight: 79.378 kg

DRUGS (1)
  1. METFORMIN HCL [Suspect]
     Indication: DIABETES MELLITUS
     Dates: start: 20030901, end: 20101221

REACTIONS (10)
  - CRYING [None]
  - PAIN [None]
  - DIARRHOEA [None]
  - BLOOD URINE PRESENT [None]
  - HAEMATOCHEZIA [None]
  - ALOPECIA [None]
  - GAIT DISTURBANCE [None]
  - NEUROPATHY PERIPHERAL [None]
  - DRUG HYPERSENSITIVITY [None]
  - WEIGHT DECREASED [None]
